FAERS Safety Report 21454100 (Version 1)
Quarter: 2022Q4

REPORT INFORMATION
  Report Type: Spontaneous
  Country: US (occurrence: US)
  Receive Date: 20221013
  Receipt Date: 20221013
  Transmission Date: 20230113
  Serious: Yes (Life-Threatening, Hospitalization, Other)
  Sender: FDA-Public Use
  Company Number: US-BRISTOL-MYERS SQUIBB COMPANY-2022-120935

PATIENT
  Age: 82 Year
  Sex: Male
  Weight: 104.33 kg

DRUGS (15)
  1. AZACITIDINE [Suspect]
     Active Substance: AZACITIDINE
     Indication: Myelodysplastic syndrome
     Route: 058
     Dates: start: 20220124, end: 20220201
  2. AMARYL [Concomitant]
     Active Substance: GLIMEPIRIDE
     Indication: Hyperglycaemia
     Dosage: 2 IN 1 D
     Route: 048
     Dates: start: 20120322, end: 20220222
  3. AMARYL [Concomitant]
     Active Substance: GLIMEPIRIDE
  4. LEVOTHYROXINE SODIUM [Concomitant]
     Active Substance: LEVOTHYROXINE SODIUM
     Indication: Hypothyroidism
     Dosage: 1 IN 1 D
     Route: 048
     Dates: start: 20120322, end: 20220211
  5. LEVOTHYROXINE SODIUM [Concomitant]
     Active Substance: LEVOTHYROXINE SODIUM
  6. NIACIN [Concomitant]
     Active Substance: NIACIN
     Indication: Hyperlipidaemia
     Dosage: 1 IN 1 D
     Route: 048
     Dates: start: 20120322, end: 20220211
  7. NIACIN [Concomitant]
     Active Substance: NIACIN
     Indication: Hyperlipidaemia
     Dosage: 1 IN 1 D
     Route: 048
     Dates: start: 20140221, end: 20220222
  8. SIMVASTATIN [Concomitant]
     Active Substance: SIMVASTATIN
     Indication: Hyperlipidaemia
     Dosage: 1 IN 1 D
     Route: 048
     Dates: start: 20120322, end: 20220222
  9. SIMVASTATIN [Concomitant]
     Active Substance: SIMVASTATIN
  10. VITAMIN B COMPLEX [Concomitant]
     Active Substance: CYANOCOBALAMIN\DEXPANTHENOL\NIACINAMIDE\PYRIDOXINE HYDROCHLORIDE\RIBOFLAVIN 5^-PHOSPHATE SODIUM\THIA
     Indication: Routine health maintenance
     Dosage: FREQUENCY TEXT: NOT PROVIDED-1 TAB
     Route: 048
     Dates: start: 20150112, end: 20220207
  11. LASIX [Concomitant]
     Active Substance: FUROSEMIDE
     Indication: Oedema peripheral
     Dosage: 3 IN 1 WEEK
     Route: 048
     Dates: start: 20211216, end: 20220207
  12. LANTUS [Concomitant]
     Active Substance: INSULIN GLARGINE
     Indication: Hyperglycaemia
     Dosage: FREQUENCY TEXT: NOT PROVIDED?AT NIGHT (80 ML,1 IN 1 D)
     Route: 058
     Dates: start: 20120322, end: 20220211
  13. METFORMIN [Concomitant]
     Active Substance: METFORMIN HYDROCHLORIDE
     Indication: Hyperglycaemia
     Dosage: 2000 MILLIGRAM?(1000 MG,2 IN 1 D)
     Route: 048
     Dates: start: 20120322, end: 20220222
  14. MINERALS\VITAMINS [Concomitant]
     Active Substance: MINERALS\VITAMINS
     Indication: Routine health maintenance
     Dosage: FREQUENCY TEXT: NOT PROVIDED
     Route: 048
     Dates: start: 20200303, end: 20220222
  15. JANUVIA [Concomitant]
     Active Substance: SITAGLIPTIN PHOSPHATE
     Indication: Hyperlipidaemia
     Dosage: 100 MILLIGRAM
     Route: 048
     Dates: start: 20140221, end: 20220222

REACTIONS (1)
  - Clostridium bacteraemia [Recovered/Resolved]

NARRATIVE: CASE EVENT DATE: 20220207
